FAERS Safety Report 6490900-3 (Version None)
Quarter: 2009Q4

REPORT INFORMATION
  Report Type: 
  Country: None (occurrence: None)
  Receive Date: 20091211
  Receipt Date: 20091203
  Transmission Date: 20100525
  Serious: Yes (Other)
  Sender: FDA-Public Use
  Company Number: US-WATSON-2009-10338

PATIENT
  Sex: Female

DRUGS (2)
  1. FENTANYL-50 [Suspect]
     Indication: PAIN
     Dosage: APPLY 1 PATCH, Q 3 DAYS.  HAS ONLY USED 1 PATCH SO FAR.
     Route: 062
     Dates: start: 20091128, end: 20091203
  2. MORPHINE SULFATE [Concomitant]
     Indication: PAIN
     Dosage: 30 MG, TID
     Route: 048
     Dates: start: 20080101

REACTIONS (9)
  - ALTERED STATE OF CONSCIOUSNESS [None]
  - AMNESIA [None]
  - DIZZINESS [None]
  - DRUG INEFFECTIVE [None]
  - INCOHERENT [None]
  - LOSS OF CONSCIOUSNESS [None]
  - OVERDOSE [None]
  - TREMOR [None]
  - VOMITING [None]
